FAERS Safety Report 17955407 (Version 1)
Quarter: 2020Q2

REPORT INFORMATION
  Report Type: Spontaneous
  Country: JP (occurrence: JP)
  Receive Date: 20200629
  Receipt Date: 20200629
  Transmission Date: 20200714
  Serious: Yes (Hospitalization, Other)
  Sender: FDA-Public Use
  Company Number: JP-GLAXOSMITHKLINE-JP2020JPN106279

PATIENT
  Age: 50 Year
  Sex: Female

DRUGS (1)
  1. BENLYSTA [Suspect]
     Active Substance: BELIMUMAB
     Dosage: UNK
     Route: 041
     Dates: end: 20200603

REACTIONS (3)
  - Progressive multifocal leukoencephalopathy [Recovering/Resolving]
  - Hypoaesthesia [Unknown]
  - Altered state of consciousness [Unknown]
